FAERS Safety Report 7068657-7 (Version None)
Quarter: 2010Q4

REPORT INFORMATION
  Report Type: 
  Country: None (occurrence: None)
  Receive Date: 20101027
  Receipt Date: 20101027
  Transmission Date: 20110411
  Serious: Yes (Other)
  Sender: FDA-Public Use
  Company Number: None

PATIENT
  Sex: Male
  Weight: 88.4514 kg

DRUGS (1)
  1. TRAMADOL HCL [Suspect]
     Indication: PAIN
     Dosage: ONE EVERY EIGHT HOURS BY MOUTH09/23/
     Route: 048
     Dates: start: 20100922, end: 20100924

REACTIONS (1)
  - MUSCLE SPASMS [None]
